FAERS Safety Report 16344986 (Version 1)
Quarter: 2019Q2

REPORT INFORMATION
  Report Type: Spontaneous
  Country: FR (occurrence: FR)
  Receive Date: 20190522
  Receipt Date: 20190522
  Transmission Date: 20190711
  Serious: Yes (Hospitalization)
  Sender: FDA-Public Use
  Company Number: FR-AMGEN-FRASP2019079979

PATIENT
  Age: 57 Year
  Sex: Female
  Weight: 66 kg

DRUGS (7)
  1. ONDANSETRON [Concomitant]
     Active Substance: ONDANSETRON
     Dosage: 8 MILLIGRAM, QD
     Route: 042
     Dates: start: 20190507, end: 20190507
  2. PLITICAN [Concomitant]
     Active Substance: ALIZAPRIDE HYDROCHLORIDE
     Dosage: 150 MILLIGRAM, QD
     Route: 042
     Dates: start: 20190507, end: 20190507
  3. LEVOFOLINATE DE CALCIUM [Concomitant]
     Active Substance: LEVOLEUCOVORIN CALCIUM
     Dosage: 120 MILLIGRAM, QD
     Route: 042
     Dates: start: 20190507, end: 20190507
  4. LEVOFOLINATE DE CALCIUM [Concomitant]
     Active Substance: LEVOLEUCOVORIN CALCIUM
     Dosage: 346 MILLIGRAM, QD
     Route: 042
     Dates: start: 20190507, end: 20190507
  5. METHYLPREDNISOLONE. [Concomitant]
     Active Substance: METHYLPREDNISOLONE
     Dosage: 120 MILLIGRAM, QD
     Route: 042
     Dates: start: 20190507, end: 20190507
  6. VECTIBIX [Suspect]
     Active Substance: PANITUMUMAB
     Dosage: UNK
     Route: 042
  7. VECTIBIX [Suspect]
     Active Substance: PANITUMUMAB
     Indication: COLORECTAL CANCER
     Dosage: 400 MILLIGRAM, QD
     Route: 042
     Dates: start: 20190507, end: 20190507

REACTIONS (3)
  - Hypotension [Recovered/Resolved]
  - Nausea [Recovered/Resolved]
  - Tremor [Recovered/Resolved]

NARRATIVE: CASE EVENT DATE: 20190507
